FAERS Safety Report 21324929 (Version 1)
Quarter: 2022Q3

REPORT INFORMATION
  Report Type: Spontaneous
  Country: DE (occurrence: DE)
  Receive Date: 20220912
  Receipt Date: 20220912
  Transmission Date: 20221026
  Serious: Yes (Other)
  Sender: FDA-Public Use
  Company Number: DE-SAMSUNG BIOEPIS-SB-2022-19418

PATIENT
  Age: 61 Year
  Sex: Male

DRUGS (5)
  1. ADALIMUMAB [Suspect]
     Active Substance: ADALIMUMAB
     Indication: Ulcerative keratitis
     Dosage: LOADING DOSE IN FIRST WEEK (WEEK ZERO)
     Route: 058
     Dates: start: 2018
  2. ADALIMUMAB [Suspect]
     Active Substance: ADALIMUMAB
     Dosage: 40 MILLIGRAM, Q2W
     Route: 058
     Dates: end: 202102
  3. PREDNISOLONE [Concomitant]
     Active Substance: PREDNISOLONE
     Indication: Ulcerative keratitis
     Dosage: UNK
     Route: 065
  4. CYCLOSPORINE [Concomitant]
     Active Substance: CYCLOSPORINE
     Indication: Ulcerative keratitis
     Dosage: UNK
     Route: 061
  5. METHOTREXATE SODIUM [Concomitant]
     Active Substance: METHOTREXATE SODIUM
     Indication: Ulcerative keratitis
     Dosage: 10 TO 20 MILLIGRAM, QW
     Route: 058

REACTIONS (2)
  - Ulcerative keratitis [Unknown]
  - Off label use [Unknown]
